FAERS Safety Report 7985476-5 (Version None)
Quarter: 2011Q4

REPORT INFORMATION
  Report Type: 
  Country: None (occurrence: None)
  Receive Date: 20111216
  Receipt Date: 20111205
  Transmission Date: 20120403
  Serious: Yes (Other)
  Sender: FDA-Public Use
  Company Number: ES-ROCHE-1022030

PATIENT
  Age: 25 Year
  Sex: Female

DRUGS (1)
  1. NAPROXEN [Suspect]
     Indication: DYSMENORRHOEA
     Route: 065

REACTIONS (1)
  - LICHENOID KERATOSIS [None]
